FAERS Safety Report 5126758-4 (Version None)
Quarter: 2006Q4

REPORT INFORMATION
  Report Type: 
  Country: None (occurrence: None)
  Receive Date: 20061013
  Receipt Date: 20060921
  Transmission Date: 20070319
  Serious: Yes (Hospitalization, Disabling, Other)
  Sender: FDA-Public Use
  Company Number: US-BAYER-200615684BWH

PATIENT
  Age: 62 Year
  Sex: Female
  Weight: 68 kg

DRUGS (12)
  1. NEXAVAR [Suspect]
     Indication: BONE NEOPLASM MALIGNANT
     Dosage: TOTAL DAILY DOSE: 800 MG  UNIT DOSE: 200 MG
     Route: 048
     Dates: start: 20060901, end: 20060913
  2. NEXAVAR [Suspect]
     Dosage: TOTAL DAILY DOSE: 200 MG  UNIT DOSE: 200 MG
     Route: 048
     Dates: start: 20060929, end: 20061002
  3. NEXAVAR [Suspect]
     Dosage: TOTAL DAILY DOSE: 400 MG  UNIT DOSE: 200 MG
     Route: 048
     Dates: start: 20061002, end: 20061002
  4. VITAMIN E [Concomitant]
  5. OSCAL [Concomitant]
  6. URSO [Concomitant]
     Dosage: TOTAL DAILY DOSE: 1000 MG
     Route: 048
  7. NEURONTIN [Concomitant]
     Dosage: TOTAL DAILY DOSE: 600 MG
     Route: 048
  8. MORPHINE [Concomitant]
     Dosage: TOTAL DAILY DOSE: 30 MG
     Route: 048
  9. SENNA [Concomitant]
  10. CELEBREX [Concomitant]
     Route: 048
  11. PERCOCET [Concomitant]
  12. CONETA NOS [Concomitant]

REACTIONS (7)
  - BLISTER [None]
  - CHEST PAIN [None]
  - ORAL MUCOSAL BLISTERING [None]
  - PAIN OF SKIN [None]
  - PHARYNGEAL OEDEMA [None]
  - RASH GENERALISED [None]
  - VISION BLURRED [None]
